FAERS Safety Report 10519990 (Version 2)
Quarter: 2014Q4

REPORT INFORMATION
  Report Type: Spontaneous
  Country: BR (occurrence: BR)
  Receive Date: 20141015
  Receipt Date: 20141117
  Transmission Date: 20150528
  Serious: Yes (Life-Threatening, Other)
  Sender: FDA-Public Use
  Company Number: BR-BAYER-2014-149390

PATIENT
  Age: 27 Year
  Sex: Female

DRUGS (1)
  1. MIRENA [Suspect]
     Active Substance: LEVONORGESTREL
     Dosage: 20 MCG/24HR, CONT
     Route: 015
     Dates: start: 2012

REACTIONS (3)
  - Drug ineffective [None]
  - Ectopic pregnancy with contraceptive device [None]
  - Ruptured ectopic pregnancy [Recovered/Resolved]

NARRATIVE: CASE EVENT DATE: 20140727
